FAERS Safety Report 7557512-1 (Version None)
Quarter: 2011Q2

REPORT INFORMATION
  Report Type: 
  Country: None (occurrence: None)
  Receive Date: 20110620
  Receipt Date: 20110614
  Transmission Date: 20111010
  Serious: Yes (Hospitalization)
  Sender: FDA-Public Use
  Company Number: US-SHIRE-SPV1-2011-00707

PATIENT
  Sex: Male

DRUGS (4)
  1. INTUNIV [Suspect]
     Dosage: 2 MG, 1X/DAY:QD
     Route: 048
     Dates: start: 20110301, end: 20110101
  2. ZOLOFT [Concomitant]
     Indication: PRODUCT USED FOR UNKNOWN INDICATION
     Dosage: 100 MG, UNKNOWN
     Route: 048
  3. INTUNIV [Suspect]
     Indication: PRODUCT USED FOR UNKNOWN INDICATION
     Dosage: 3 MG, 1X/DAY:QD
     Route: 048
     Dates: start: 20110101, end: 20110408
  4. INTUNIV [Suspect]
     Dosage: 1 MG, 1X/DAY:QD
     Route: 048
     Dates: start: 20110316, end: 20110301

REACTIONS (5)
  - SYNCOPE [None]
  - UNRESPONSIVE TO STIMULI [None]
  - SOMNOLENCE [None]
  - HEART RATE IRREGULAR [None]
  - SINUS BRADYCARDIA [None]
